FAERS Safety Report 8808514 (Version 1)
Quarter: 2012Q4

REPORT INFORMATION
  Report Type: Spontaneous
  Country: US (occurrence: None)
  Receive Date: 20120920
  Receipt Date: 20120920
  Transmission Date: 20130627
  Serious: Yes (Disabling)
  Sender: FDA-Public Use
  Company Number: None

PATIENT
  Sex: Male
  Weight: 111.13 kg

DRUGS (1)
  1. CIMZIA [Suspect]
     Indication: ANKYLOSING SPONDYLITIS
     Dosage: 400MG Q 2 WEEKS X2 DOSE THEN 200MG Q 2 WEE SQ
     Route: 058
     Dates: start: 20120901, end: 20120919

REACTIONS (4)
  - Oropharyngeal pain [None]
  - Ear pain [None]
  - Swollen tongue [None]
  - Stomatitis [None]
